FAERS Safety Report 6424570-7 (Version None)
Quarter: 2009Q4

REPORT INFORMATION
  Report Type: 
  Country: None (occurrence: None)
  Receive Date: 20091103
  Receipt Date: 20091020
  Transmission Date: 20100525
  Serious: Yes (Other)
  Sender: FDA-Public Use
  Company Number: PHHY2009JP14144

PATIENT
  Age: 67 Year
  Sex: Female

DRUGS (3)
  1. ZOMETA [Suspect]
     Indication: METASTASES TO BONE
     Dosage: UNK
     Dates: start: 20070704
  2. ZOMETA [Suspect]
     Dosage: UNK
     Dates: end: 20090305
  3. CHEMOTHERAPEUTICS NOS [Concomitant]

REACTIONS (8)
  - BONE LESION [None]
  - DENTAL CARIES [None]
  - GINGIVITIS [None]
  - OSTEONECROSIS [None]
  - PAIN [None]
  - PERIODONTITIS [None]
  - PYREXIA [None]
  - TOOTH LOSS [None]
